FAERS Safety Report 7450779-X (Version None)
Quarter: 2011Q2

REPORT INFORMATION
  Report Type: 
  Country: None (occurrence: None)
  Receive Date: 20110502
  Receipt Date: 20101203
  Transmission Date: 20111010
  Serious: No
  Sender: FDA-Public Use
  Company Number: US-BAYER-2010-006041

PATIENT
  Age: 32 Year
  Sex: Female

DRUGS (2)
  1. MIRENA [Suspect]
     Indication: PREMENSTRUAL SYNDROME
     Dosage: 20 MCG/24HR, UNK
     Dates: start: 20101105, end: 20101124
  2. MIRENA [Suspect]
     Indication: CONTRACEPTION

REACTIONS (1)
  - DEVICE EXPULSION [None]
